FAERS Safety Report 5492009-4 (Version None)
Quarter: 2007Q4

REPORT INFORMATION
  Report Type: 
  Country: None (occurrence: None)
  Receive Date: 20071022
  Receipt Date: 20071010
  Transmission Date: 20080405
  Serious: Yes (Life-Threatening)
  Sender: FDA-Public Use
  Company Number: B0491700A

PATIENT
  Age: 72 Year
  Sex: Female

DRUGS (8)
  1. CLAVENTIN [Suspect]
     Indication: OSTEITIS
     Dosage: 5G THREE TIMES PER DAY
     Route: 042
     Dates: start: 20070824
  2. CIFLOX [Suspect]
     Indication: OSTEITIS
     Route: 048
     Dates: start: 20070824
  3. CALCIPARINE [Suspect]
     Route: 058
     Dates: start: 20070824
  4. GENTALLINE [Concomitant]
     Indication: OSTEITIS
     Route: 065
     Dates: start: 20070821, end: 20070824
  5. VANCOMYCIN HCL [Concomitant]
     Indication: OSTEITIS
     Route: 065
     Dates: start: 20070821, end: 20070824
  6. LOVENOX [Concomitant]
     Route: 065
     Dates: start: 20070817, end: 20070824
  7. TRAMADOL HYDROCHLORIDE AND ACETAMINOPHEN [Concomitant]
     Route: 065
     Dates: start: 20070816, end: 20070828
  8. VENOFER [Concomitant]
     Route: 065

REACTIONS (2)
  - ALKALOSIS [None]
  - HYPOKALAEMIA [None]
